FAERS Safety Report 16063270 (Version 1)
Quarter: 2019Q1

REPORT INFORMATION
  Report Type: Spontaneous
  Country: FR (occurrence: FR)
  Receive Date: 20190312
  Receipt Date: 20190312
  Transmission Date: 20190418
  Serious: Yes (Life-Threatening)
  Sender: FDA-Public Use
  Company Number: FR-MYLANLABS-2019M1021685

PATIENT
  Age: 19 Year
  Sex: Female
  Weight: 42 kg

DRUGS (14)
  1. GLUCIDION [Concomitant]
     Active Substance: GLUCOSE, LIQUID\POTASSIUM CHLORIDE\SODIUM CHLORIDE
     Dosage: UNK
  2. NOMEGESTROL [Concomitant]
     Active Substance: NOMEGESTROL
     Dosage: UNK
  3. DERMOVAL                           /00337102/ [Concomitant]
     Active Substance: CLOBETASOL PROPIONATE
  4. NOXAFIL [Concomitant]
     Active Substance: POSACONAZOLE
     Dosage: UNK
  5. SPASFON LYOC [Concomitant]
     Active Substance: PHLOROGLUCINOL
     Dosage: UNK
  6. MYCAMINE [Concomitant]
     Active Substance: MICAFUNGIN SODIUM
     Dosage: UNK
  7. NEFOPAM MYLAN [Concomitant]
     Active Substance: NEFOPAM
     Dosage: 20 MG/2 ML
  8. PANTOPRAZOLE [Concomitant]
     Active Substance: PANTOPRAZOLE
     Dosage: UNK
  9. PIPERACILLIN AND TAZOBACTAM [Suspect]
     Active Substance: PIPERACILLIN SODIUM\TAZOBACTAM SODIUM
     Indication: FEBRILE BONE MARROW APLASIA
     Dosage: 12 GRAM, QD
     Route: 042
     Dates: start: 20180531, end: 20180609
  10. POTASSIUM CHLORIDE. [Concomitant]
     Active Substance: POTASSIUM CHLORIDE
     Dosage: UNK
  11. DEBRIDAT                           /00465202/ [Concomitant]
     Active Substance: TRIMEBUTINE
     Dosage: UNK
  12. TRAMADOL HCL [Concomitant]
     Active Substance: TRAMADOL HYDROCHLORIDE
  13. SODIUM CHLORIDE BRAUN [Concomitant]
     Active Substance: SODIUM CHLORIDE
     Dosage: UNK
  14. METHYLPREDNISOLONE MYLAN           /00049604/ [Concomitant]
     Active Substance: METHYLPREDNISOLONE HEMISUCCINATE
     Dosage: UNK

REACTIONS (3)
  - Peritonitis [Recovered/Resolved with Sequelae]
  - Pseudomembranous colitis [Recovered/Resolved with Sequelae]
  - Large intestine perforation [Recovered/Resolved with Sequelae]

NARRATIVE: CASE EVENT DATE: 20180614
